FAERS Safety Report 5265932-3 (Version None)
Quarter: 2007Q1

REPORT INFORMATION
  Report Type: 
  Country: None (occurrence: None)
  Receive Date: 20070315
  Receipt Date: 20070308
  Transmission Date: 20070707
  Serious: Yes (Other)
  Sender: FDA-Public Use
  Company Number: US-JNJFOC-20070105652

PATIENT
  Sex: Male
  Weight: 54.43 kg

DRUGS (3)
  1. TYLENOL (GELTAB) [Suspect]
  2. TYLENOL (GELTAB) [Suspect]
     Indication: NASOPHARYNGITIS
  3. CLARITIN [Concomitant]
     Indication: MULTIPLE ALLERGIES
     Dosage: EVERY EVENING

REACTIONS (3)
  - HYPERSENSITIVITY [None]
  - RASH [None]
  - WHEEZING [None]
